FAERS Safety Report 11631935 (Version 1)
Quarter: 2015Q4

REPORT INFORMATION
  Report Type: Report from Study
  Country: US (occurrence: US)
  Receive Date: 20151015
  Receipt Date: 20151015
  Transmission Date: 20160304
  Serious: Yes (Hospitalization)
  Sender: FDA-Public Use
  Company Number: US-ABBVIE-15K-163-1477113-00

PATIENT
  Age: 77 Year
  Sex: Female

DRUGS (1)
  1. HUMIRA [Suspect]
     Active Substance: ADALIMUMAB
     Indication: PSORIASIS
     Route: 065
     Dates: start: 20150101

REACTIONS (8)
  - Confusional state [Unknown]
  - Mobility decreased [Unknown]
  - Mental status changes [Recovered/Resolved]
  - Oxygen saturation abnormal [Unknown]
  - Rotator cuff syndrome [Unknown]
  - Contusion [Unknown]
  - Chronic obstructive pulmonary disease [Recovered/Resolved]
  - Gas poisoning [Unknown]

NARRATIVE: CASE EVENT DATE: 2015
